FAERS Safety Report 9908588 (Version 1)
Quarter: 2014Q1

REPORT INFORMATION
  Report Type: Report from Study
  Country: FR (occurrence: FR)
  Receive Date: 20140219
  Receipt Date: 20140219
  Transmission Date: 20141002
  Serious: Yes (Other)
  Sender: FDA-Public Use
  Company Number: FR-ROCHE-1346246

PATIENT
  Sex: Male

DRUGS (3)
  1. RITUXIMAB [Suspect]
     Indication: RHEUMATOID ARTHRITIS
     Route: 041
     Dates: start: 20060505, end: 20120806
  2. SOLU-MEDROL [Suspect]
     Indication: PRODUCT USED FOR UNKNOWN INDICATION
     Route: 065
  3. CORTANCYL [Concomitant]
     Route: 065

REACTIONS (4)
  - Cholinergic syndrome [Recovered/Resolved]
  - Rash erythematous [Unknown]
  - Bronchitis [Recovered/Resolved]
  - Lung disorder [Recovered/Resolved]
